FAERS Safety Report 19635803 (Version 1)
Quarter: 2021Q3

REPORT INFORMATION
  Report Type: Spontaneous
  Country: DE (occurrence: DE)
  Receive Date: 20210730
  Receipt Date: 20210730
  Transmission Date: 20211014
  Serious: Yes (Death, Life-Threatening, Hospitalization, Other)
  Sender: FDA-Public Use
  Company Number: DE-TOPROL-2020000316

PATIENT
  Age: 38 Year
  Sex: Female

DRUGS (3)
  1. FENTANYL. [Suspect]
     Active Substance: FENTANYL
     Dosage: 419 MCG/H
     Route: 062
  2. LORAZEPAM. [Suspect]
     Active Substance: LORAZEPAM
     Dosage: 419 MCG/H
     Route: 062
  3. METOPROLOL SUCCINATE. [Suspect]
     Active Substance: METOPROLOL SUCCINATE
     Dosage: 10.5 G, UNK
     Route: 048

REACTIONS (17)
  - Suicide attempt [Fatal]
  - Blood glucose increased [Fatal]
  - Ventricular tachycardia [Fatal]
  - Bundle branch block left [Fatal]
  - Cardiac arrest [Fatal]
  - Cerebral ischaemia [Fatal]
  - Hyperkalaemia [Fatal]
  - Coma [Fatal]
  - Vasoconstriction [Fatal]
  - Embolic cerebral infarction [Fatal]
  - Acute myocardial infarction [Fatal]
  - Respiratory failure [Fatal]
  - Metabolic acidosis [Fatal]
  - Intentional overdose [Fatal]
  - Toxicity to various agents [Fatal]
  - Coronary artery occlusion [Fatal]
  - Circulatory collapse [Fatal]
